FAERS Safety Report 4394565-6 (Version None)
Quarter: 2004Q3

REPORT INFORMATION
  Report Type: 
  Country: None (occurrence: None)
  Receive Date: 20040707
  Receipt Date: 20040625
  Transmission Date: 20050211
  Serious: Yes (Hospitalization)
  Sender: FDA-Public Use
  Company Number: 03P-163-0244685-00

PATIENT
  Age: 68 Year
  Sex: Female
  Weight: 63.05 kg

DRUGS (14)
  1. HUMIRA [Suspect]
     Indication: RHEUMATOID ARTHRITIS
     Dosage: 40 MG, 1 IN 2 WK, SUBCUTANEOUS
     Route: 058
     Dates: start: 20031001, end: 20031101
  2. LANSOPRAZOLE [Concomitant]
  3. OXYCODONE HYDROCHLORIDE [Concomitant]
  4. ALPRAZOLAM [Concomitant]
  5. TEIRINOL [Concomitant]
  6. FLEXORALL [Concomitant]
  7. METHOTREXATE SODIUM [Concomitant]
  8. PREDNISONE [Concomitant]
  9. INSULIN HUMAN [Concomitant]
  10. NITROGLYCERIN [Concomitant]
  11. METOPROLOL SUCCINATE [Concomitant]
  12. UANPHYL [Concomitant]
  13. COUMADIN [Concomitant]
  14. TOLTERODINE TARTRATE [Concomitant]

REACTIONS (8)
  - BLOOD MAGNESIUM DECREASED [None]
  - DIFFICULTY IN WALKING [None]
  - DRUG INEFFECTIVE [None]
  - LUNG DISORDER [None]
  - PAIN [None]
  - PAIN IN EXTREMITY [None]
  - PNEUMONIA [None]
  - THROMBOSIS [None]
